FAERS Safety Report 6734154-9 (Version None)
Quarter: 2010Q2

REPORT INFORMATION
  Report Type: 
  Country: None (occurrence: None)
  Receive Date: 20100520
  Receipt Date: 20100512
  Transmission Date: 20101027
  Serious: Yes (Other)
  Sender: FDA-Public Use
  Company Number: GXKR2010IN05363

PATIENT
  Age: 21 Year
  Sex: Female

DRUGS (3)
  1. ISONIAZID [Suspect]
     Indication: TUBERCULOSIS
     Dosage: 600 MG, TIW
     Route: 065
  2. RIFAMPICIN [Suspect]
     Indication: TUBERCULOSIS
     Dosage: 450 MG, TIW
     Route: 065
  3. PYRAZINAMIDE [Suspect]
     Indication: TUBERCULOSIS
     Dosage: 1500 MG, TIW
     Route: 065

REACTIONS (4)
  - ABDOMINAL PAIN UPPER [None]
  - SPLENIC ABSCESS [None]
  - SPLENIC LESION [None]
  - SPLENOMEGALY [None]
